FAERS Safety Report 5836550-0 (Version None)
Quarter: 2008Q3

REPORT INFORMATION
  Report Type: 
  Country: None (occurrence: None)
  Receive Date: 20080801
  Receipt Date: 20080424
  Transmission Date: 20090109
  Serious: No
  Sender: FDA-Public Use
  Company Number: 2008-0622

PATIENT
  Age: 62 Year
  Sex: Female

DRUGS (4)
  1. SOMATULINE DEPOT [Suspect]
     Indication: ACROMEGALY
     Dosage: 90MG(1 IN 4WK),SUBCUTAN
     Route: 058
     Dates: start: 20080101
  2. LIPITOR [Concomitant]
  3. METFORMIN HCL [Concomitant]
  4. FLAXSEED OIL [Concomitant]

REACTIONS (2)
  - INJECTION SITE IRRITATION [None]
  - INJECTION SITE NODULE [None]
